FAERS Safety Report 19778326 (Version 1)
Quarter: 2021Q3

REPORT INFORMATION
  Report Type: Spontaneous
  Country: US (occurrence: US)
  Receive Date: 20210831
  Receipt Date: 20210831
  Transmission Date: 20211014
  Serious: No
  Sender: FDA-Public Use
  Company Number: None

PATIENT
  Age: 70 Year
  Sex: Female

DRUGS (1)
  1. NINLARO [Suspect]
     Active Substance: IXAZOMIB CITRATE
     Indication: PRODUCT USED FOR UNKNOWN INDICATION
     Dosage: ?          OTHER FREQUENCY:WKLY 3 ON 1 OFF;?
     Route: 048
     Dates: start: 20200529

REACTIONS (2)
  - Adverse event [None]
  - Suspected product quality issue [None]

NARRATIVE: CASE EVENT DATE: 202104
